FAERS Safety Report 22299579 (Version 1)
Quarter: 2023Q2

REPORT INFORMATION
  Report Type: Spontaneous
  Country: US (occurrence: None)
  Receive Date: 20230508
  Receipt Date: 20230508
  Transmission Date: 20230722
  Serious: Yes (Other)
  Sender: FDA-Public Use
  Company Number: None

PATIENT
  Age: 8 Year
  Sex: Male
  Weight: 21.6 kg

DRUGS (2)
  1. SULFAMETHOXAZOLE AND TRIMETHOPRIM [Suspect]
     Active Substance: SULFAMETHOXAZOLE\TRIMETHOPRIM
     Indication: Dacryocystitis
     Dates: start: 20230301, end: 20230309
  2. METHYLPHENIDATE [Concomitant]
     Active Substance: METHYLPHENIDATE

REACTIONS (6)
  - Urticaria [None]
  - Fear [None]
  - Recalled product administered [None]
  - Erythema [None]
  - Skin discolouration [None]
  - Nonspecific reaction [None]

NARRATIVE: CASE EVENT DATE: 20230309
